FAERS Safety Report 24030166 (Version 1)
Quarter: 2024Q2

REPORT INFORMATION
  Report Type: Spontaneous
  Country: FR (occurrence: FR)
  Receive Date: 20240628
  Receipt Date: 20240628
  Transmission Date: 20240715
  Serious: Yes (Hospitalization)
  Sender: FDA-Public Use
  Company Number: None

PATIENT
  Age: 47 Year
  Sex: Female

DRUGS (3)
  1. CARBOPLATIN [Suspect]
     Active Substance: CARBOPLATIN
     Indication: Breast cancer
     Dosage: ROUTE OF ADMIN: INTRAVENOUS
     Dates: start: 20240327, end: 20240530
  2. PACLITAXEL [Suspect]
     Active Substance: PACLITAXEL
     Indication: Breast cancer
     Dosage: ROUTE OF ADMIN: INTRAVENOUS
     Dates: start: 20240327, end: 20240530
  3. PEMBROLIZUMAB [Suspect]
     Active Substance: PEMBROLIZUMAB
     Indication: Breast cancer
     Route: 042
     Dates: start: 20240327, end: 20240530

REACTIONS (1)
  - Hepatitis acute [Not Recovered/Not Resolved]

NARRATIVE: CASE EVENT DATE: 20240530
